FAERS Safety Report 16880008 (Version 1)
Quarter: 2019Q4

REPORT INFORMATION
  Report Type: Spontaneous
  Country: US (occurrence: US)
  Receive Date: 20191003
  Receipt Date: 20191003
  Transmission Date: 20200122
  Serious: No
  Sender: FDA-Public Use
  Company Number: US-GLAXOSMITHKLINE-US2019178233

PATIENT
  Sex: Female

DRUGS (1)
  1. INCRUSE ELLIPTA [Suspect]
     Active Substance: UMECLIDINIUM BROMIDE
     Indication: PRODUCT USED FOR UNKNOWN INDICATION
     Dosage: 1 PUFF(S), QD
     Route: 065

REACTIONS (6)
  - Pain [Recovered/Resolved]
  - Insomnia [Recovered/Resolved]
  - Feeling abnormal [Recovered/Resolved]
  - Rhinorrhoea [Recovered/Resolved]
  - Heart rate increased [Recovered/Resolved]
  - Oropharyngeal pain [Recovered/Resolved]
